FAERS Safety Report 10570214 (Version 2)
Quarter: 2014Q4

REPORT INFORMATION
  Report Type: Spontaneous
  Country: CA (occurrence: None)
  Receive Date: 20141105
  Receipt Date: 20141107
  Transmission Date: 20150529
  Serious: Yes (Other)
  Sender: FDA-Public Use
  Company Number: CA-017591

PATIENT
  Age: 73 Year
  Sex: Male

DRUGS (23)
  1. FENTANYL. [Concomitant]
     Active Substance: FENTANYL
  2. SPIRIVA [Concomitant]
     Active Substance: TIOTROPIUM BROMIDE MONOHYDRATE
  3. PANTOLOC [Concomitant]
     Active Substance: PANTOPRAZOLE SODIUM
  4. ASA [Concomitant]
     Active Substance: ASPIRIN
  5. OXAZEPAM. [Concomitant]
     Active Substance: OXAZEPAM
  6. FIRMAGON [Suspect]
     Active Substance: DEGARELIX ACETATE
     Indication: PROSTATE CANCER
     Dosage: MONTH
     Route: 058
     Dates: start: 20140312
  7. MG [Concomitant]
     Active Substance: MAGNESIUM
  8. SENOKOT [Concomitant]
     Active Substance: SENNOSIDES
  9. BICALUTAMIDE. [Concomitant]
     Active Substance: BICALUTAMIDE
  10. FLOVENT [Concomitant]
     Active Substance: FLUTICASONE PROPIONATE
  11. AMCINONIDE. [Concomitant]
     Active Substance: AMCINONIDE
  12. CARBOCAL D [Concomitant]
     Active Substance: CALCIUM\VITAMIN D
  13. DILAUDID [Concomitant]
     Active Substance: HYDROMORPHONE HYDROCHLORIDE
  14. D-TABS [Concomitant]
     Active Substance: CHOLECALCIFEROL
  15. ATACAND [Concomitant]
     Active Substance: CANDESARTAN CILEXETIL
  16. SALVENT [Concomitant]
  17. IPRATROPIUM [Concomitant]
     Active Substance: IPRATROPIUM
  18. COLACE [Concomitant]
     Active Substance: DOCUSATE SODIUM
  19. GLYCERIN. [Concomitant]
     Active Substance: GLYCERIN
  20. EURO FOLIC [Concomitant]
  21. CARBAMAZEPINE. [Concomitant]
     Active Substance: CARBAMAZEPINE
  22. ELIGARD [Concomitant]
     Active Substance: LEUPROLIDE ACETATE
  23. GABAPENTIN. [Concomitant]
     Active Substance: GABAPENTIN

REACTIONS (2)
  - Prostatic specific antigen increased [None]
  - Dyspnoea [None]
